FAERS Safety Report 22365801 (Version 6)
Quarter: 2024Q4

REPORT INFORMATION
  Report Type: Spontaneous
  Country: JP (occurrence: JP)
  Receive Date: 20230525
  Receipt Date: 20241220
  Transmission Date: 20250115
  Serious: No
  Sender: RECORDATI
  Company Number: JP-RECORDATI-2023002979

PATIENT

DRUGS (3)
  1. ISTURISA [Suspect]
     Active Substance: OSILODROSTAT PHOSPHATE
     Indication: Pituitary-dependent Cushing^s syndrome
     Dosage: 3 MILLIGRAM DAILY
     Route: 048
     Dates: start: 202108, end: 20230510
  2. ISTURISA [Suspect]
     Active Substance: OSILODROSTAT PHOSPHATE
     Dosage: 3 MILLIGRAM DAILY
     Route: 048
     Dates: start: 20230716
  3. CORTRIL [Concomitant]
     Active Substance: HYDROCORTISONE
     Indication: Adrenal insufficiency
     Dosage: 20 MG/DAY
     Dates: start: 2021, end: 20230514

REACTIONS (1)
  - Maternal exposure during pregnancy [Recovered/Resolved]

NARRATIVE: CASE EVENT DATE: 20230101
